FAERS Safety Report 21782366 (Version 1)
Quarter: 2022Q4

REPORT INFORMATION
  Report Type: Spontaneous
  Country: US (occurrence: US)
  Receive Date: 20221227
  Receipt Date: 20221227
  Transmission Date: 20230113
  Serious: No
  Sender: FDA-Public Use
  Company Number: US-BAUSCHBL-2022BNL003221

PATIENT
  Sex: Female

DRUGS (1)
  1. ZIRGAN [Suspect]
     Active Substance: GANCICLOVIR
     Indication: Product used for unknown indication
     Dosage: 3 DOSAGE FORM EVERY 1 DAY(S) 1 DF, TID
     Route: 047

REACTIONS (2)
  - Skin disorder [Not Recovered/Not Resolved]
  - Underdose [Not Recovered/Not Resolved]
